FAERS Safety Report 9083861 (Version 1)
Quarter: 2013Q1

REPORT INFORMATION
  Report Type: Report from Study
  Country: US (occurrence: US)
  Receive Date: 20130131
  Receipt Date: 20130131
  Transmission Date: 20140127
  Serious: No
  Sender: FDA-Public Use
  Company Number: US-ABBOTT-12P-163-1010343-00

PATIENT
  Age: 20 Year
  Sex: Female

DRUGS (9)
  1. HUMIRA [Suspect]
     Indication: COLITIS ULCERATIVE
     Dates: start: 20121019, end: 20121019
  2. HUMIRA [Suspect]
     Dates: start: 20121102, end: 20121102
  3. HUMIRA [Suspect]
     Dates: start: 20121116
  4. HYOMAX [Concomitant]
     Indication: IRRITABLE BOWEL SYNDROME
     Dosage: 1 IN THE AM AND 1 IN THE PM
  5. AMITRIPTYLINE [Concomitant]
     Indication: IRRITABLE BOWEL SYNDROME
     Dosage: AT NIGHT
  6. LIALDA [Concomitant]
     Indication: COLITIS ULCERATIVE
  7. CITALOPRAM [Concomitant]
     Indication: DEPRESSION
     Dosage: AT NIGHT
  8. CITALOPRAM [Concomitant]
     Indication: ANXIETY
  9. MERCAPTOPURINE [Concomitant]
     Indication: COLITIS ULCERATIVE

REACTIONS (1)
  - Butterfly rash [Not Recovered/Not Resolved]
